FAERS Safety Report 25280332 (Version 2)
Quarter: 2025Q2

REPORT INFORMATION
  Report Type: Report from Study
  Country: GB (occurrence: GB)
  Receive Date: 20250507
  Receipt Date: 20250528
  Transmission Date: 20250717
  Serious: Yes (Other)
  Sender: ABBVIE
  Company Number: GB-ABBVIE-6267139

PATIENT
  Age: 27 Year
  Sex: Female

DRUGS (1)
  1. SKYRIZI [Suspect]
     Active Substance: RISANKIZUMAB-RZAA
     Indication: Crohn^s disease
     Dosage: SKYRIZI 360MG/2.4ML SOLUTION FOR INJECTION CARTRIDGE ON-BODY DEVICE?SOLUTION FOR INJECTION IN CAR...
     Route: 058
     Dates: start: 20250130

REACTIONS (3)
  - Stoma creation [Unknown]
  - Skin graft [Unknown]
  - Sweat gland excision [Unknown]

NARRATIVE: CASE EVENT DATE: 20250423
